FAERS Safety Report 21905210 (Version 2)
Quarter: 2023Q1

REPORT INFORMATION
  Report Type: Spontaneous
  Country: GB (occurrence: GB)
  Receive Date: 20230124
  Receipt Date: 20230313
  Transmission Date: 20230417
  Serious: Yes (Hospitalization, Other)
  Sender: FDA-Public Use
  Company Number: None

PATIENT
  Age: 50 Year
  Sex: Male

DRUGS (21)
  1. METFORMIN [Suspect]
     Active Substance: METFORMIN HYDROCHLORIDE
     Indication: Product used for unknown indication
     Dosage: 1 DOSAGE FORM, TID (500 MG ONE TO BE TAKEN WITH BREAKFAST, LUNCH AND EVENING MEAL)
     Route: 065
     Dates: start: 20220404
  2. METFORMIN [Suspect]
     Active Substance: METFORMIN HYDROCHLORIDE
     Dosage: 500 MILLIGRAM, TID, ONE WITH BREAKFAST, LUNCH AND EVENING MEAL 84 TABLET HELD OA
     Route: 065
  3. BECLOMETHASONE DIPROPIONATE [Concomitant]
     Active Substance: BECLOMETHASONE DIPROPIONATE
     Dosage: UNK (TWO PUFFS TO BE INHALED TWICE A DAY 1 X 200 DOSE)
     Route: 065
     Dates: start: 20220412
  4. BECLOMETHASONE DIPROPIONATE [Concomitant]
     Active Substance: BECLOMETHASONE DIPROPIONATE
     Dosage: 2 DOSAGE FORM, BID, 100MICROGRAMS/DOSE INHALER (CHIESI LTD)TWO PUFFS TO BE INHALED TWICE A DAY
     Route: 055
  5. ALBUTEROL [Concomitant]
     Active Substance: ALBUTEROL
     Dosage: UNK (TWO PUFFS TO BE INHALED AS NEEDED)
     Route: 065
     Dates: start: 20220412
  6. ALBUTEROL [Concomitant]
     Active Substance: ALBUTEROL
     Dosage: 2 DOSAGE FORM 100MICROGRAMS/DOSE INHALER CFC FREE (TEVA UK LTD) TWO PUFFS TO BE INHALED AS NEEDED
     Route: 055
  7. ALVERINE [Concomitant]
     Active Substance: ALVERINE
     Dosage: 1 DOSAGE FORM, BID (1-2 TDS 50 CAPSULE)
     Route: 065
     Dates: start: 20220412
  8. ALVERINE [Concomitant]
     Active Substance: ALVERINE
     Dosage: 60 MILLIGRAM, 1-2 TDS
     Route: 065
  9. AMISULPRIDE [Concomitant]
     Active Substance: AMISULPRIDE
     Dosage: 2 DOSAGE FORM, HS (TWO AT NIGHT 56 TABLET )
     Route: 065
     Dates: start: 20220412
  10. AMISULPRIDE [Concomitant]
     Active Substance: AMISULPRIDE
     Dosage: 200 MILLIGRAM, BID, TWO AT NIGHT
     Route: 065
  11. CITALOPRAM [Concomitant]
     Active Substance: CITALOPRAM HYDROBROMIDE
     Dosage: 1 DOSAGE FORM, QD (ONE TO BE TAKEN EACH DAY)
     Route: 065
     Dates: start: 20220412
  12. CITALOPRAM [Concomitant]
     Active Substance: CITALOPRAM HYDROBROMIDE
     Dosage: 40 MILLIGRAM, QD
     Route: 065
  13. KEMADRIN [Concomitant]
     Active Substance: PROCYCLIDINE HYDROCHLORIDE
     Dosage: 1 DOSAGE FORM, BID
     Route: 065
     Dates: start: 20220412
  14. LANSOPRAZOLE [Concomitant]
     Active Substance: LANSOPRAZOLE
     Dosage: 1 DOSAGE FORM, AM (28 CAPSULE)
     Route: 065
     Dates: start: 20220412
  15. LANSOPRAZOLE [Concomitant]
     Active Substance: LANSOPRAZOLE
     Dosage: 30 MILLIGRAM, QD, ONE TO BETAKEN EACH MORNING
     Route: 065
  16. LOSARTAN [Concomitant]
     Active Substance: LOSARTAN
     Dosage: 1 DOSAGE FORM, QD
     Route: 065
     Dates: start: 20220412
  17. LOSARTAN [Concomitant]
     Active Substance: LOSARTAN
     Dosage: 50 MILLIGRAM, QD, ONE TO BE TAKEN EACH DAY 28 TABLET - HELD OA
     Route: 065
  18. PREGABALIN [Concomitant]
     Active Substance: PREGABALIN
     Dosage: 1 DOSAGE FORM, BID
     Route: 065
     Dates: start: 20220412
  19. PREGABALIN [Concomitant]
     Active Substance: PREGABALIN
     Dosage: 10 MILLIGRAM, BID
     Route: 065
  20. LITHIUM [Concomitant]
     Active Substance: LITHIUM
     Dosage: 2 DOSAGE FORM
     Route: 065
     Dates: start: 20220412
  21. LITHIUM [Concomitant]
     Active Substance: LITHIUM
     Dosage: 800 MILLIGRAM, QD (AT NIGHT)
     Route: 065

REACTIONS (1)
  - Hepatitis [Unknown]
